FAERS Safety Report 18898918 (Version 2)
Quarter: 2021Q2

REPORT INFORMATION
  Report Type: Report from Study
  Country: FI (occurrence: FI)
  Receive Date: 20210216
  Receipt Date: 20210401
  Transmission Date: 20210717
  Serious: Yes (Other)
  Sender: FDA-Public Use
  Company Number: FI-MYLANLABS-2021M1009112

PATIENT
  Age: 67 Year
  Sex: Female

DRUGS (16)
  1. LEPONEX [Suspect]
     Active Substance: CLOZAPINE
     Indication: SCHIZOPHRENIA
     Dosage: 225 MILLIGRAM, QD
     Dates: end: 20210205
  2. LEPONEX [Suspect]
     Active Substance: CLOZAPINE
     Dosage: 25 MILLIGRAM, QD
     Dates: start: 20210209, end: 20210209
  3. LEPONEX [Suspect]
     Active Substance: CLOZAPINE
     Dosage: 25 MG + 50 MG
     Dates: start: 20210210, end: 20210210
  4. RIVATRIL [Concomitant]
     Active Substance: CLONAZEPAM
     Dosage: 0.5 MG + 1 MG, 0.5 MG IN THE DAYTIME AND 1 MG IN THE EVENING
     Dates: start: 20210205
  5. TENOX                              /00393701/ [Concomitant]
     Active Substance: TEMAZEPAM
     Dosage: PER DAY, IN THE NIGHT
     Dates: start: 20210205
  6. METFOREM [Concomitant]
     Active Substance: METFORMIN HYDROCHLORIDE
     Dosage: 500 MILLIGRAM, BID
  7. TENOX                              /00393701/ [Concomitant]
     Active Substance: TEMAZEPAM
     Dosage: 10 MILLIGRAM, PRN
     Dates: end: 20210205
  8. LEPONEX [Suspect]
     Active Substance: CLOZAPINE
     Dosage: 100 MILLIGRAM, QD
     Dates: start: 20210211, end: 20210319
  9. LEPONEX [Suspect]
     Active Substance: CLOZAPINE
     Dosage: 100 MILLIGRAM, QD
     Dates: start: 20210322
  10. LETROZOLE. [Concomitant]
     Active Substance: LETROZOLE
     Indication: BREAST CANCER
     Dosage: 1 DOSAGE FORM, QD
     Dates: start: 20210108
  11. IBRANCE [Suspect]
     Active Substance: PALBOCICLIB
     Dosage: UNK
     Dates: start: 202102, end: 2021
  12. BISOPROLOL [Concomitant]
     Active Substance: BISOPROLOL
     Dosage: 2.5 MILLIGRAM, QD
  13. IBRANCE [Suspect]
     Active Substance: PALBOCICLIB
     Indication: BREAST CANCER
     Dosage: 125 MILLIGRAM, QD
     Dates: start: 20210118, end: 20210207
  14. RIVATRIL [Concomitant]
     Active Substance: CLONAZEPAM
     Dosage: 1 DOSAGE FORM, BID
     Dates: end: 20210205
  15. KETIPINOR [Concomitant]
     Active Substance: QUETIAPINE FUMARATE
     Dosage: UNK
     Dates: end: 20210205
  16. SIMVASTATIN. [Concomitant]
     Active Substance: SIMVASTATIN
     Dosage: 20 MILLIGRAM, QD

REACTIONS (7)
  - Neutropenia [Recovered/Resolved]
  - Poor quality sleep [Unknown]
  - Metastases to bone [Unknown]
  - White blood cell count decreased [Recovered/Resolved]
  - Breast cancer [Unknown]
  - Lymphoma [Unknown]
  - Breast cancer metastatic [Unknown]

NARRATIVE: CASE EVENT DATE: 2017
